FAERS Safety Report 5235645-2 (Version None)
Quarter: 2007Q1

REPORT INFORMATION
  Report Type: 
  Country: None (occurrence: None)
  Receive Date: 20070212
  Receipt Date: 20070207
  Transmission Date: 20070707
  Serious: Yes (Hospitalization)
  Sender: FDA-Public Use
  Company Number: US-GLAXOSMITHKLINE-A0638754A

PATIENT
  Age: 27 Month
  Sex: Male

DRUGS (2)
  1. WELLBUTRIN XL [Suspect]
     Indication: NERVOUS SYSTEM DISORDER
     Dates: start: 20030601
  2. STEROID [Concomitant]

REACTIONS (2)
  - CONVULSION [None]
  - DRUG EXPOSURE DURING PREGNANCY [None]
